FAERS Safety Report 6180966-2 (Version None)
Quarter: 2009Q2

REPORT INFORMATION
  Report Type: 
  Country: None (occurrence: None)
  Receive Date: 20090504
  Receipt Date: 20090504
  Transmission Date: 20091009
  Serious: Yes (Death)
  Sender: FDA-Public Use
  Company Number: None

PATIENT
  Age: 54 Year
  Sex: Female

DRUGS (3)
  1. LEXAPRO [Suspect]
     Indication: DEPRESSION
     Dosage: 2-3/DAY PO
     Route: 048
     Dates: start: 20090316, end: 20090323
  2. MIRTAZAPINE [Suspect]
     Indication: ANXIETY
     Dosage: 15MG AS NEEDED PO
     Route: 048
     Dates: start: 20090323, end: 20090330
  3. MIRTAZAPINE [Suspect]
     Indication: DEPRESSION
     Dosage: 15MG AS NEEDED PO
     Route: 048
     Dates: start: 20090323, end: 20090330

REACTIONS (6)
  - ANOREXIA [None]
  - ANXIETY [None]
  - DYSPHAGIA [None]
  - FEAR [None]
  - NAUSEA [None]
  - SUICIDAL IDEATION [None]
